FAERS Safety Report 4638911-4 (Version None)
Quarter: 2005Q2

REPORT INFORMATION
  Report Type: 
  Country: None (occurrence: None)
  Receive Date: 20050415
  Receipt Date: 20050324
  Transmission Date: 20051028
  Serious: Yes (Hospitalization)
  Sender: FDA-Public Use
  Company Number: CA_050307931

PATIENT
  Age: 56 Year
  Sex: Female

DRUGS (4)
  1. FORTEO [Suspect]
     Indication: OSTEOPOROSIS
     Dosage: 20 UG
     Dates: start: 20050310
  2. IMURAN [Concomitant]
  3. NEXIUM [Concomitant]
  4. PREDNISONE [Concomitant]

REACTIONS (2)
  - BLOOD PRESSURE INCREASED [None]
  - VOMITING [None]
